FAERS Safety Report 6314219-6 (Version None)
Quarter: 2009Q3

REPORT INFORMATION
  Report Type: 
  Country: None (occurrence: None)
  Receive Date: 20090817
  Receipt Date: 20090811
  Transmission Date: 20100115
  Serious: Yes (Hospitalization, Other)
  Sender: FDA-Public Use
  Company Number: 1000006622

PATIENT
  Age: 54 Year
  Sex: Male
  Weight: 95.2554 kg

DRUGS (43)
  1. CELEXA [Suspect]
     Indication: AFFECTIVE DISORDER
     Dosage: 10 MG (10 MG, 1 IN 1 D), ORAL; 20 MG (20 MG,1 IN 1 D), ORAL
     Route: 048
     Dates: start: 20071116, end: 20071129
  2. CELEXA [Suspect]
     Indication: DEPRESSION
     Dosage: 10 MG (10 MG, 1 IN 1 D), ORAL; 20 MG (20 MG,1 IN 1 D), ORAL
     Route: 048
     Dates: start: 20071116, end: 20071129
  3. CELEXA [Suspect]
     Indication: POST-TRAUMATIC STRESS DISORDER
     Dosage: 10 MG (10 MG, 1 IN 1 D), ORAL; 20 MG (20 MG,1 IN 1 D), ORAL
     Route: 048
     Dates: start: 20071116, end: 20071129
  4. CELEXA [Suspect]
     Indication: SUICIDAL IDEATION
     Dosage: 10 MG (10 MG, 1 IN 1 D), ORAL; 20 MG (20 MG,1 IN 1 D), ORAL
     Route: 048
     Dates: start: 20071116, end: 20071129
  5. CELEXA [Suspect]
     Indication: AFFECTIVE DISORDER
     Dosage: 10 MG (10 MG, 1 IN 1 D), ORAL; 20 MG (20 MG,1 IN 1 D), ORAL
     Route: 048
     Dates: start: 20071130, end: 20071213
  6. CELEXA [Suspect]
     Indication: DEPRESSION
     Dosage: 10 MG (10 MG, 1 IN 1 D), ORAL; 20 MG (20 MG,1 IN 1 D), ORAL
     Route: 048
     Dates: start: 20071130, end: 20071213
  7. CELEXA [Suspect]
     Indication: POST-TRAUMATIC STRESS DISORDER
     Dosage: 10 MG (10 MG, 1 IN 1 D), ORAL; 20 MG (20 MG,1 IN 1 D), ORAL
     Route: 048
     Dates: start: 20071130, end: 20071213
  8. CELEXA [Suspect]
     Indication: SUICIDAL IDEATION
     Dosage: 10 MG (10 MG, 1 IN 1 D), ORAL; 20 MG (20 MG,1 IN 1 D), ORAL
     Route: 048
     Dates: start: 20071130, end: 20071213
  9. CELEXA [Suspect]
     Indication: AFFECTIVE DISORDER
     Dosage: SEE IMAGE
     Route: 048
     Dates: start: 20071214, end: 20090423
  10. CELEXA [Suspect]
     Indication: DEPRESSION
     Dosage: SEE IMAGE
     Route: 048
     Dates: start: 20071214, end: 20090423
  11. CELEXA [Suspect]
     Indication: POST-TRAUMATIC STRESS DISORDER
     Dosage: SEE IMAGE
     Route: 048
     Dates: start: 20071214, end: 20090423
  12. CELEXA [Suspect]
     Indication: SUICIDAL IDEATION
     Dosage: SEE IMAGE
     Route: 048
     Dates: start: 20071214, end: 20090423
  13. CELEXA [Suspect]
     Indication: AFFECTIVE DISORDER
     Dosage: SEE IMAGE
     Route: 048
     Dates: start: 20090424, end: 20090430
  14. CELEXA [Suspect]
     Indication: DEPRESSION
     Dosage: SEE IMAGE
     Route: 048
     Dates: start: 20090424, end: 20090430
  15. CELEXA [Suspect]
     Indication: POST-TRAUMATIC STRESS DISORDER
     Dosage: SEE IMAGE
     Route: 048
     Dates: start: 20090424, end: 20090430
  16. CELEXA [Suspect]
     Indication: SUICIDAL IDEATION
     Dosage: SEE IMAGE
     Route: 048
     Dates: start: 20090424, end: 20090430
  17. CELEXA [Suspect]
     Indication: AFFECTIVE DISORDER
     Dosage: SEE IMAGE
     Route: 048
     Dates: start: 20090501, end: 20090507
  18. CELEXA [Suspect]
     Indication: DEPRESSION
     Dosage: SEE IMAGE
     Route: 048
     Dates: start: 20090501, end: 20090507
  19. CELEXA [Suspect]
     Indication: POST-TRAUMATIC STRESS DISORDER
     Dosage: SEE IMAGE
     Route: 048
     Dates: start: 20090501, end: 20090507
  20. CELEXA [Suspect]
     Indication: SUICIDAL IDEATION
     Dosage: SEE IMAGE
     Route: 048
     Dates: start: 20090501, end: 20090507
  21. CELEXA [Suspect]
     Indication: AFFECTIVE DISORDER
     Dosage: SEE IMAGE
     Route: 048
     Dates: start: 20090508, end: 20090514
  22. CELEXA [Suspect]
     Indication: DEPRESSION
     Dosage: SEE IMAGE
     Route: 048
     Dates: start: 20090508, end: 20090514
  23. CELEXA [Suspect]
     Indication: POST-TRAUMATIC STRESS DISORDER
     Dosage: SEE IMAGE
     Route: 048
     Dates: start: 20090508, end: 20090514
  24. CELEXA [Suspect]
     Indication: SUICIDAL IDEATION
     Dosage: SEE IMAGE
     Route: 048
     Dates: start: 20090508, end: 20090514
  25. VICODIN [Suspect]
     Indication: PAIN
     Dates: start: 20090220, end: 20090424
  26. VICODIN [Suspect]
     Indication: POST-THORACOTOMY PAIN SYNDROME
     Dates: start: 20090220, end: 20090424
  27. DILAUDID [Suspect]
     Indication: PAIN
     Dates: start: 20090220, end: 20090424
  28. DILAUDID [Suspect]
     Indication: POST-THORACOTOMY PAIN SYNDROME
     Dates: start: 20090220, end: 20090424
  29. NEURONTIN [Suspect]
     Indication: PAIN
     Dates: start: 20090220, end: 20090424
  30. NEURONTIN [Suspect]
     Indication: POST-THORACOTOMY PAIN SYNDROME
     Dates: start: 20090220, end: 20090424
  31. METOPROLOL [Suspect]
     Indication: HYPERTENSION
     Dosage: 200 MG,ORAL
     Route: 048
     Dates: start: 20030101, end: 20081001
  32. TRAMADOL HCL [Suspect]
     Indication: BACK PAIN
     Dosage: 100 MG (50 MG, 2 IN 1 D)
     Dates: start: 20081001, end: 20090424
  33. XANAX [Concomitant]
  34. ATIVAN [Concomitant]
  35. CLONAZEPAM [Concomitant]
  36. ACTOS [Concomitant]
  37. ALLOPURINOL [Concomitant]
  38. PRAVACHOL [Concomitant]
  39. COLCHICINE [Concomitant]
  40. LISINOPRIL [Concomitant]
  41. ASPIRIN [Concomitant]
  42. FLUTICASONE [Concomitant]
  43. AMBIEN [Concomitant]

REACTIONS (19)
  - ABNORMAL BEHAVIOUR [None]
  - AGGRESSION [None]
  - BLOOD GLUCOSE INCREASED [None]
  - CULTURE POSITIVE [None]
  - DISORIENTATION [None]
  - DIZZINESS [None]
  - DRUG INTERACTION [None]
  - HYPOTENSION [None]
  - LOSS OF CONSCIOUSNESS [None]
  - LUNG DISORDER [None]
  - MANIA [None]
  - MENTAL STATUS CHANGES [None]
  - NAUSEA [None]
  - OBSESSIVE-COMPULSIVE DISORDER [None]
  - PNEUMONIA [None]
  - PNEUMONIA CRYPTOCOCCAL [None]
  - POST-THORACOTOMY PAIN SYNDROME [None]
  - PULMONARY MASS [None]
  - STREPTOCOCCAL INFECTION [None]
